FAERS Safety Report 8396982 (Version 4)
Quarter: 2014Q1

REPORT INFORMATION
  Report Type: Spontaneous
  Country: US (occurrence: US)
  Receive Date: 20120209
  Receipt Date: 20140211
  Transmission Date: 20141002
  Serious: No
  Sender: FDA-Public Use
  Company Number: US-PFIZER INC-2012032396

PATIENT
  Age: 69 Year
  Sex: Female
  Weight: 73 kg

DRUGS (5)
  1. TIKOSYN [Suspect]
     Indication: ATRIAL FIBRILLATION
     Dosage: 0.5 MG, 2X/DAY
     Route: 048
     Dates: start: 200901
  2. TIKOSYN [Suspect]
     Dosage: 0.25 MG, 2X/DAY
     Route: 048
     Dates: start: 200901
  3. TIKOSYN [Suspect]
     Dosage: 0.25 MG, EVERY 9HRS
  4. TIKOSYN [Suspect]
     Dosage: UNK
  5. TIKOSYN [Suspect]

REACTIONS (2)
  - Headache [Recovered/Resolved]
  - Drug effect incomplete [Unknown]
